FAERS Safety Report 6832615-5 (Version None)
Quarter: 2010Q3

REPORT INFORMATION
  Report Type: 
  Country: None (occurrence: None)
  Receive Date: 20100712
  Receipt Date: 20070316
  Transmission Date: 20110219
  Serious: No
  Sender: FDA-Public Use
  Company Number: US-PFIZER INC-2007021413

PATIENT
  Age: 42 Year
  Sex: Female
  Weight: 79.38 kg

DRUGS (4)
  1. CHANTIX [Suspect]
     Indication: SMOKING CESSATION THERAPY
     Dates: start: 20070301
  2. DARVOCET [Concomitant]
  3. PREDNISONE [Concomitant]
     Dates: end: 20070315
  4. SYNTHROID [Concomitant]

REACTIONS (2)
  - NAUSEA [None]
  - VOMITING [None]
